FAERS Safety Report 13945903 (Version 1)
Quarter: 2017Q3

REPORT INFORMATION
  Report Type: Spontaneous
  Country: None (occurrence: US)
  Receive Date: 20170907
  Receipt Date: 20170907
  Transmission Date: 20171128
  Serious: No
  Sender: FDA-Public Use
  Company Number: US-ALLERGAN-1681312US

PATIENT
  Sex: Female
  Weight: 94.35 kg

DRUGS (1)
  1. FIORINAL [Suspect]
     Active Substance: ASPIRIN\BUTALBITAL\CAFFEINE
     Indication: MIGRAINE

REACTIONS (2)
  - Hypoaesthesia [Unknown]
  - Feeling abnormal [Unknown]
